FAERS Safety Report 11755769 (Version 1)
Quarter: 2015Q4

REPORT INFORMATION
  Report Type: Spontaneous
  Country: US (occurrence: US)
  Receive Date: 20151119
  Receipt Date: 20151119
  Transmission Date: 20160304
  Serious: No
  Sender: FDA-Public Use
  Company Number: US-AMARIN PHARMA, INC.-2015AMR000133

PATIENT
  Sex: Male

DRUGS (3)
  1. VASCEPA [Suspect]
     Active Substance: ICOSAPENT ETHYL
     Indication: HYPERTRIGLYCERIDAEMIA
     Route: 048
  2. OTC KRILL OIL [Concomitant]
     Indication: PRODUCT USED FOR UNKNOWN INDICATION
     Route: 065
  3. COUMADIN [Concomitant]
     Active Substance: WARFARIN SODIUM
     Indication: BLOOD DISORDER
     Route: 065

REACTIONS (5)
  - Eructation [Recovered/Resolved]
  - International normalised ratio fluctuation [Not Recovered/Not Resolved]
  - Prothrombin level decreased [Not Recovered/Not Resolved]
  - Fatigue [Recovered/Resolved]
  - Activated partial thromboplastin time shortened [Not Recovered/Not Resolved]
